FAERS Safety Report 22058050 (Version 1)
Quarter: 2023Q1

REPORT INFORMATION
  Report Type: Spontaneous
  Country: KR (occurrence: KR)
  Receive Date: 20230303
  Receipt Date: 20230303
  Transmission Date: 20230417
  Serious: Yes (Other)
  Sender: FDA-Public Use
  Company Number: KR-JNJFOC-20230246441

PATIENT

DRUGS (2)
  1. STELARA [Suspect]
     Active Substance: USTEKINUMAB
     Indication: Crohn^s disease
     Dosage: 260 MG FOR PATIENTS WITH BODY WEIGHT, FOR PATIENTS WITH BODY WEIGHT BUT AND FOR PATIENTS WITH
     Route: 040
  2. STELARA [Suspect]
     Active Substance: USTEKINUMAB
     Route: 058

REACTIONS (15)
  - Haematochezia [Unknown]
  - Insomnia [Unknown]
  - Paraesthesia [Unknown]
  - Alopecia [Unknown]
  - Pyrexia [Unknown]
  - Pruritus [Unknown]
  - Arthralgia [Unknown]
  - Myalgia [Unknown]
  - Nausea [Unknown]
  - Diarrhoea [Unknown]
  - Headache [Unknown]
  - Dizziness [Unknown]
  - Upper respiratory tract infection [Unknown]
  - Vomiting [Unknown]
  - Therapeutic response decreased [Unknown]
